FAERS Safety Report 5158720-X (Version None)
Quarter: 2006Q4

REPORT INFORMATION
  Report Type: 
  Country: None (occurrence: None)
  Receive Date: 20061128
  Receipt Date: 20060725
  Transmission Date: 20070319
  Serious: Yes (Hospitalization)
  Sender: FDA-Public Use
  Company Number: JP-JPN-A200602828

PATIENT
  Age: 1 Year
  Sex: Male

DRUGS (1)
  1. FLUTIDE [Suspect]
     Indication: ASTHMA
     Dosage: 1250MCG TWICE PER DAY
     Route: 055
     Dates: start: 20060527, end: 20060602

REACTIONS (4)
  - LYMPHADENITIS [None]
  - LYMPHADENITIS BACTERIAL [None]
  - OVERDOSE [None]
  - PAROTITIS [None]
